FAERS Safety Report 7319202-X (Version None)
Quarter: 2011Q1

REPORT INFORMATION
  Report Type: 
  Country: None (occurrence: None)
  Receive Date: 20110228
  Receipt Date: 20110217
  Transmission Date: 20110831
  Serious: Yes (Hospitalization)
  Sender: FDA-Public Use
  Company Number: CA-ASTRAZENECA-2011SE09461

PATIENT
  Age: 75 Year
  Sex: Female

DRUGS (5)
  1. SYMBICORT [Suspect]
     Indication: ASTHMA
     Dosage: 800 MCG TWO TIMES A DAY
     Route: 055
  2. RAN-FOSINOPRIL [Concomitant]
     Route: 048
  3. IPRATROPIUM BROMIDE [Concomitant]
     Dosage: 1-2 INHALATION WHEN REQUIRED
     Route: 055
     Dates: start: 20101201
  4. FOLIC ACID [Concomitant]
     Route: 048
  5. EURO-FER [Concomitant]
     Route: 048

REACTIONS (3)
  - DYSPNOEA [None]
  - TREMOR [None]
  - BALANCE DISORDER [None]
